FAERS Safety Report 14497641 (Version 1)
Quarter: 2018Q1

REPORT INFORMATION
  Report Type: Report from Study
  Country: FR (occurrence: FR)
  Receive Date: 20180207
  Receipt Date: 20180207
  Transmission Date: 20180509
  Serious: Yes (Death, Hospitalization, Other)
  Sender: FDA-Public Use
  Company Number: PHHO2012FR018198

PATIENT
  Age: 58 Year
  Sex: Male
  Weight: 74 kg

DRUGS (7)
  1. LODOZ [Concomitant]
     Active Substance: BISOPROLOL FUMARATE\HYDROCHLOROTHIAZIDE
     Indication: HYPERTENSION
     Dosage: 5 MG, QD
     Route: 065
  2. VOGALENE [Concomitant]
     Active Substance: METOPIMAZINE
     Indication: NAUSEA
     Dosage: 7.5 MG, PRN
     Route: 065
     Dates: start: 20121119
  3. LEE011 [Suspect]
     Active Substance: RIBOCICLIB
     Indication: SARCOMA
     Dosage: 1200 MG, DAY1 TO DAY 21
     Route: 048
     Dates: start: 20121114, end: 20121204
  4. TRAMADOL. [Concomitant]
     Active Substance: TRAMADOL
     Indication: PAIN
     Dosage: 200 MG, BID
     Route: 065
  5. PERMIXON [Concomitant]
     Active Substance: HERBALS\SAW PALMETTO
     Indication: PROSTATIC ADENOMA
     Dosage: 160 MG, QD
     Route: 065
  6. BROMAZEPAM [Concomitant]
     Active Substance: BROMAZEPAM
     Indication: ANXIETY
     Dosage: 6 MG, PRN
     Route: 065
  7. PARACETAMOL [Concomitant]
     Active Substance: ACETAMINOPHEN
     Indication: PAIN
     Dosage: 1 G, PRN
     Route: 065

REACTIONS (4)
  - Thrombocytopenia [Recovered/Resolved]
  - Decreased appetite [Unknown]
  - Malignant neoplasm progression [Fatal]
  - Asthenia [Unknown]

NARRATIVE: CASE EVENT DATE: 20121115
